FAERS Safety Report 7030933-1 (Version None)
Quarter: 2010Q4

REPORT INFORMATION
  Report Type: 
  Country: None (occurrence: None)
  Receive Date: 20101001
  Receipt Date: 20100923
  Transmission Date: 20110411
  Serious: Yes (Life-Threatening, Hospitalization, Other)
  Sender: FDA-Public Use
  Company Number: CL-226-2010

PATIENT
  Age: 73 Year
  Sex: Female
  Weight: 127.6 kg

DRUGS (11)
  1. AMIODARONE HCL [Suspect]
     Indication: POISONING DELIBERATE
     Dosage: ORAL
     Route: 048
  2. BROMAZEPAM [Suspect]
     Indication: POISONING DELIBERATE
     Dosage: UP TO 180 MG, ONCE, ORAL
     Route: 048
  3. ZOLPIDEM TARTRATE [Suspect]
     Indication: POISONING DELIBERATE
     Dosage: UP TO 140 MG, ONCE, ORAL
     Route: 048
  4. ESOMEPRAZOLE MAGNESIUM [Suspect]
     Dosage: 20 MG, DAILY, ORAL
     Route: 048
  5. FLUINDIONE [Concomitant]
  6. DIPYRAMIDOLE [Concomitant]
  7. AMLODIPINE [Concomitant]
  8. RAMIPRIL [Concomitant]
  9. GLICLAZIDE [Concomitant]
  10. ATORVASTATIN [Concomitant]
  11. BETAHISTINE [Concomitant]

REACTIONS (9)
  - BRADYPNOEA [None]
  - COMA [None]
  - DRUG INTERACTION [None]
  - ELECTROCARDIOGRAM PR PROLONGATION [None]
  - ELECTROCARDIOGRAM QRS COMPLEX SHORTENED [None]
  - INTERNATIONAL NORMALISED RATIO INCREASED [None]
  - PNEUMONIA ASPIRATION [None]
  - POISONING DELIBERATE [None]
  - SINUS BRADYCARDIA [None]
